FAERS Safety Report 4811446-1 (Version None)
Quarter: 2005Q4

REPORT INFORMATION
  Report Type: 
  Country: None (occurrence: None)
  Receive Date: 20051026
  Receipt Date: 20051026
  Transmission Date: 20060501
  Serious: Yes (Other)
  Sender: FDA-Public Use
  Company Number: None

PATIENT
  Age: 61 Year
  Sex: Female
  Weight: 88.905 kg

DRUGS (2)
  1. ATENOLOL/HCTZ 50/25 [Suspect]
     Indication: HYPERTENSION
     Dosage: Q 24 HRS   OVER 10 YEARS
  2. FOSINOPRIL 10MG [Suspect]
     Indication: HYPERTENSION
     Dosage: Q 24 HRS  OVER 10 YEARS

REACTIONS (3)
  - DYSPNOEA [None]
  - SENSATION OF HEAVINESS [None]
  - VISION BLURRED [None]
